FAERS Safety Report 13657407 (Version 6)
Quarter: 2020Q2

REPORT INFORMATION
  Report Type: Report from Study
  Country: CA (occurrence: CA)
  Receive Date: 20170615
  Receipt Date: 20200515
  Transmission Date: 20200713
  Serious: Yes (Other)
  Sender: FDA-Public Use
  Company Number: CA-ASCEND THERAPEUTICS-2022092

PATIENT
  Age: 43 Year
  Sex: Female

DRUGS (8)
  1. ESTROGEL [Suspect]
     Active Substance: ESTRADIOL
     Route: 062
     Dates: start: 201607, end: 201610
  2. ESTROGEL [Suspect]
     Active Substance: ESTRADIOL
     Route: 062
     Dates: start: 20170322
  3. ESTROGEL [Suspect]
     Active Substance: ESTRADIOL
     Route: 062
  4. ESTROGEL [Suspect]
     Active Substance: ESTRADIOL
     Indication: HORMONE REPLACEMENT THERAPY
     Route: 062
     Dates: start: 201410, end: 201607
  5. ESTROGEL [Suspect]
     Active Substance: ESTRADIOL
     Route: 062
  6. ESTROGEL [Suspect]
     Active Substance: ESTRADIOL
     Route: 062
  7. ESTROGEL [Suspect]
     Active Substance: ESTRADIOL
     Route: 062
     Dates: start: 201610, end: 20170321
  8. ESTROGEL [Suspect]
     Active Substance: ESTRADIOL
     Route: 062
     Dates: start: 2017

REACTIONS (13)
  - Suicide attempt [Unknown]
  - Hyperhidrosis [Unknown]
  - Intentional product use issue [Unknown]
  - Hot flush [Unknown]
  - Mental disorder [Unknown]
  - Product use issue [Unknown]
  - Hyperhidrosis [Recovered/Resolved]
  - Intentional overdose [Unknown]
  - Drug ineffective [Unknown]
  - Device issue [None]
  - Product administered at inappropriate site [None]
  - Intentional product use issue [None]
  - Product storage error [Unknown]

NARRATIVE: CASE EVENT DATE: 2016
